FAERS Safety Report 9801760 (Version 2)
Quarter: 2014Q1

REPORT INFORMATION
  Report Type: Spontaneous
  Country: FR (occurrence: FR)
  Receive Date: 20140107
  Receipt Date: 20140107
  Transmission Date: 20141002
  Serious: Yes (Other)
  Sender: FDA-Public Use
  Company Number: PHHY2013FR129004

PATIENT
  Age: 63 Year
  Sex: Female

DRUGS (6)
  1. LEPONEX [Suspect]
     Indication: DEMENTIA
     Dosage: 50 MG, QD
     Route: 048
     Dates: start: 20130827
  2. LEPONEX [Suspect]
     Dosage: 100 MG
     Route: 048
  3. ATARAX [Concomitant]
     Dosage: 25 MG, TID
     Route: 048
  4. TEMESTA [Concomitant]
     Dosage: 1 MG, QID
     Route: 048
  5. LAROXYL [Concomitant]
     Dosage: 25 DRP AT BEDTIME
     Route: 048
  6. CYMBALTA [Concomitant]
     Dosage: 2 DF, QD
     Route: 048

REACTIONS (6)
  - Dementia with Lewy bodies [Unknown]
  - Extrapyramidal disorder [Unknown]
  - Libido increased [Not Recovered/Not Resolved]
  - Hot flush [Not Recovered/Not Resolved]
  - Libido decreased [Unknown]
  - Sensory disturbance [Unknown]
